FAERS Safety Report 16962684 (Version 1)
Quarter: 2019Q4

REPORT INFORMATION
  Report Type: Spontaneous
  Country: US (occurrence: US)
  Receive Date: 20190908
  Receipt Date: 20190908
  Transmission Date: 20200122
  Serious: No
  Sender: FDA-Public Use
  Company Number: None

PATIENT
  Age: 27 Year
  Sex: Female

DRUGS (1)
  1. MAKENA [Suspect]
     Active Substance: HYDROXYPROGESTERONE CAPROATE
     Indication: PREGNANCY
     Route: 058
     Dates: start: 20190904

REACTIONS (4)
  - Pain in extremity [None]
  - Injection site discomfort [None]
  - Injection site pain [None]
  - Insomnia [None]

NARRATIVE: CASE EVENT DATE: 20190904
